FAERS Safety Report 22304506 (Version 2)
Quarter: 2023Q2

REPORT INFORMATION
  Report Type: Spontaneous
  Country: US (occurrence: US)
  Receive Date: 20230510
  Receipt Date: 20230512
  Transmission Date: 20230721
  Serious: No
  Sender: FDA-Public Use
  Company Number: US-LUPIN PHARMACEUTICALS INC.-2023-03527

PATIENT

DRUGS (1)
  1. ALBUTEROL SULFATE [Suspect]
     Active Substance: ALBUTEROL SULFATE
     Indication: Asthma
     Dosage: UNK,  2 PUFFS TWICE 4 TIMES A DAY
     Dates: start: 20230501

REACTIONS (7)
  - Dyspnoea [Unknown]
  - Product dose omission issue [Unknown]
  - Device delivery system issue [Unknown]
  - Device breakage [Unknown]
  - Product expiration date issue [Unknown]
  - Product lot number issue [Unknown]
  - Device mechanical issue [Unknown]
